FAERS Safety Report 7439694-5 (Version None)
Quarter: 2011Q2

REPORT INFORMATION
  Report Type: 
  Country: None (occurrence: None)
  Receive Date: 20110427
  Receipt Date: 20110414
  Transmission Date: 20111010
  Serious: Yes (Other)
  Sender: FDA-Public Use
  Company Number: PHHY2011FI31730

PATIENT
  Age: 65 Year
  Sex: Male

DRUGS (2)
  1. LEPONEX [Suspect]
     Indication: PSYCHOTIC DISORDER
     Dates: start: 20080201, end: 20110407
  2. MINRIN [Suspect]
     Dates: end: 20110304

REACTIONS (3)
  - WHITE BLOOD CELL COUNT DECREASED [None]
  - BLOOD SODIUM DECREASED [None]
  - DRUG INTERACTION [None]
